FAERS Safety Report 4333996-7 (Version None)
Quarter: 2004Q2

REPORT INFORMATION
  Report Type: 
  Country: None (occurrence: None)
  Receive Date: 20040402
  Receipt Date: 20040326
  Transmission Date: 20050107
  Serious: Yes (Other)
  Sender: FDA-Public Use
  Company Number: DE-SHR-04-022324

PATIENT
  Age: 76 Year
  Sex: Female
  Weight: 77 kg

DRUGS (2)
  1. REFLUDAN [Suspect]
     Indication: COAGULOPATHY
     Dosage: 590 MG IN HER BODY
  2. REFLUDAN [Suspect]
     Indication: PROPHYLAXIS
     Dosage: 590 MG IN HER BODY

REACTIONS (5)
  - DIALYSIS [None]
  - HAEMATOMA [None]
  - OVERDOSE [None]
  - POST PROCEDURAL HAEMORRHAGE [None]
  - RENAL FAILURE ACUTE [None]
